FAERS Safety Report 18637562 (Version 1)
Quarter: 2020Q4

REPORT INFORMATION
  Report Type: Spontaneous
  Country: US (occurrence: US)
  Receive Date: 20201218
  Receipt Date: 20201218
  Transmission Date: 20210114
  Serious: No
  Sender: FDA-Public Use
  Company Number: US-TAKEDA-US202028802

PATIENT
  Sex: Female

DRUGS (4)
  1. GATTEX [Suspect]
     Active Substance: TEDUGLUTIDE\WATER
     Indication: ATTENTION DEFICIT HYPERACTIVITY DISORDER
     Dosage: UNK
     Route: 058
     Dates: start: 20161106
  2. GATTEX [Suspect]
     Active Substance: TEDUGLUTIDE\WATER
     Indication: ATTENTION DEFICIT HYPERACTIVITY DISORDER
     Dosage: UNK
     Route: 058
     Dates: start: 20161106
  3. GATTEX [Suspect]
     Active Substance: TEDUGLUTIDE\WATER
     Indication: ATTENTION DEFICIT HYPERACTIVITY DISORDER
     Dosage: UNK
     Route: 058
     Dates: start: 20161106
  4. GATTEX [Suspect]
     Active Substance: TEDUGLUTIDE\WATER
     Indication: ATTENTION DEFICIT HYPERACTIVITY DISORDER
     Dosage: UNK
     Route: 058
     Dates: start: 20161106

REACTIONS (3)
  - Therapeutic reaction time decreased [Unknown]
  - No adverse event [Unknown]
  - Inappropriate schedule of product administration [Unknown]
